FAERS Safety Report 17696964 (Version 1)
Quarter: 2020Q2

REPORT INFORMATION
  Report Type: Spontaneous
  Country: IN (occurrence: IN)
  Receive Date: 20200423
  Receipt Date: 20200423
  Transmission Date: 20200714
  Serious: Yes (Other)
  Sender: FDA-Public Use
  Company Number: IN-RECKITT BENCKISER HEALTHCARE INT LIMITED-RB-85448-2020

PATIENT
  Age: 70 Year
  Sex: Male

DRUGS (1)
  1. DETTOL FIRST AID ANTISEPTIC [Suspect]
     Active Substance: CHLOROXYLENOL
     Indication: PRODUCT USED FOR UNKNOWN INDICATION
     Dosage: UNK
     Route: 048
     Dates: start: 20200419

REACTIONS (3)
  - Dysphagia [Not Recovered/Not Resolved]
  - Accidental exposure to product [Not Recovered/Not Resolved]
  - Burning sensation [Not Recovered/Not Resolved]

NARRATIVE: CASE EVENT DATE: 20200419
